FAERS Safety Report 6239947-2 (Version None)
Quarter: 2009Q2

REPORT INFORMATION
  Report Type: 
  Country: None (occurrence: None)
  Receive Date: 20090623
  Receipt Date: 20090618
  Transmission Date: 20091009
  Serious: No
  Sender: FDA-Public Use
  Company Number: US-B.I. PHARMACEUTICALS,INC./RIDGEFIELD-2009-BP-06889BP

PATIENT
  Age: 79 Year
  Sex: Male

DRUGS (6)
  1. MIRAPEX [Suspect]
     Indication: RESTLESS LEGS SYNDROME
     Dosage: 0.125 MG
     Route: 048
     Dates: start: 20090604
  2. MIRAPEX [Suspect]
     Dosage: 0.25 MG
     Route: 048
  3. ZOCOR [Concomitant]
     Indication: BLOOD CHOLESTEROL INCREASED
  4. GLIPIZIDE [Concomitant]
  5. CQID [Concomitant]
     Dosage: 200 MG
  6. RAMIPRIL [Concomitant]
     Dosage: 2.5 MG

REACTIONS (1)
  - BLOOD GLUCOSE INCREASED [None]
